FAERS Safety Report 20310672 (Version 1)
Quarter: 2022Q1

REPORT INFORMATION
  Report Type: Spontaneous
  Country: US (occurrence: None)
  Receive Date: 20220107
  Receipt Date: 20220107
  Transmission Date: 20220423
  Serious: Yes (Other)
  Sender: FDA-Public Use
  Company Number: None

PATIENT
  Age: 75 Year
  Sex: Female
  Weight: 73.8 kg

DRUGS (19)
  1. IBRANCE [Suspect]
     Active Substance: PALBOCICLIB
     Indication: Breast cancer
     Dosage: OTHER FREQUENCY : EVERY OTHER DAY;?
     Route: 048
     Dates: start: 20211022
  2. FLUTICASONE [Concomitant]
     Active Substance: FLUTICASONE
  3. gabpentin [Concomitant]
  4. PLAVIX [Concomitant]
     Active Substance: CLOPIDOGREL BISULFATE
  5. renelva [Concomitant]
  6. AMLODIPINE [Concomitant]
     Active Substance: AMLODIPINE BESYLATE
  7. ASPIRIN [Concomitant]
     Active Substance: ASPIRIN
  8. CALCIUM [Concomitant]
     Active Substance: CALCIUM
  9. CLONIDINE [Concomitant]
     Active Substance: CLONIDINE
  10. FOSRENOL [Concomitant]
     Active Substance: LANTHANUM CARBONATE
  11. GLIPIZIDE [Concomitant]
     Active Substance: GLIPIZIDE
  12. LABETALOL HYDROCHLORIDE [Concomitant]
     Active Substance: LABETALOL HYDROCHLORIDE
  13. NORCO [Concomitant]
     Active Substance: ACETAMINOPHEN\HYDROCODONE BITARTRATE
  14. OLMESARTAN [Concomitant]
     Active Substance: OLMESARTAN
  15. ROSUVASTATIN [Concomitant]
     Active Substance: ROSUVASTATIN
  16. VITAMIN B COMPLEX [Concomitant]
     Active Substance: CYANOCOBALAMIN\DEXPANTHENOL\NIACINAMIDE\PYRIDOXINE HYDROCHLORIDE\RIBOFLAVIN 5^-PHOSPHATE SODIUM\THIA
  17. AQUAPHOR [Concomitant]
     Active Substance: PETROLATUM
  18. ATORVASTATIN [Concomitant]
     Active Substance: ATORVASTATIN
  19. CLARITIN [Concomitant]
     Active Substance: LORATADINE

REACTIONS (3)
  - Fall [None]
  - Hip fracture [None]
  - Pelvic fracture [None]

NARRATIVE: CASE EVENT DATE: 20220107
